FAERS Safety Report 6192931-X (Version None)
Quarter: 2009Q2

REPORT INFORMATION
  Report Type: 
  Country: None (occurrence: None)
  Receive Date: 20090518
  Receipt Date: 20090505
  Transmission Date: 20091009
  Serious: No
  Sender: FDA-Public Use
  Company Number: US-BAXTER-2009BH008176

PATIENT
  Age: 6 Month
  Sex: Male
  Weight: 5 kg

DRUGS (3)
  1. GAMMAGARD S/D [Suspect]
     Indication: BRUTON'S AGAMMAGLOBULINAEMIA
     Route: 042
     Dates: start: 20070619, end: 20071101
  2. NEUPOGEN [Concomitant]
     Indication: DRUG USE FOR UNKNOWN INDICATION
     Route: 065
     Dates: start: 20070327, end: 20070619
  3. ANTIBIOTICS [Concomitant]
     Indication: DRUG USE FOR UNKNOWN INDICATION
     Route: 065

REACTIONS (1)
  - DRUG INEFFECTIVE [None]
